FAERS Safety Report 17858942 (Version 1)
Quarter: 2020Q2

REPORT INFORMATION
  Report Type: Spontaneous
  Country: CN (occurrence: CN)
  Receive Date: 20200604
  Receipt Date: 20200604
  Transmission Date: 20200714
  Serious: Yes (Other)
  Sender: FDA-Public Use
  Company Number: CN-PFIZER INC-2020212095

PATIENT
  Age: 81 Year
  Sex: Male
  Weight: 56 kg

DRUGS (4)
  1. ACTILYSE [Concomitant]
     Active Substance: ALTEPLASE
     Dosage: 56.7 MG, 1X/DAY
     Route: 041
     Dates: start: 20200506, end: 20200506
  2. ATORVASTATIN CALCIUM. [Suspect]
     Active Substance: ATORVASTATIN CALCIUM
     Indication: ARTERIOSCLEROSIS
     Dosage: 20 MG, DAILY (EVERY NIGHT)
     Dates: start: 202005
  3. ACTILYSE [Concomitant]
     Active Substance: ALTEPLASE
     Indication: CEREBRAL INFARCTION
     Dosage: 6.3 MG, DAILY
     Route: 042
     Dates: start: 20200506, end: 20200506
  4. KAI LI KANG [Concomitant]
     Indication: CEREBRAL INFARCTION
     Dosage: 0.15 DF, DAILY
     Route: 041
     Dates: start: 20200506, end: 20200514

REACTIONS (3)
  - Poor quality sleep [Unknown]
  - Restlessness [Unknown]
  - Infection [Unknown]

NARRATIVE: CASE EVENT DATE: 202005
